FAERS Safety Report 4560951-4 (Version None)
Quarter: 2005Q1

REPORT INFORMATION
  Report Type: 
  Country: None (occurrence: None)
  Receive Date: 20050126
  Receipt Date: 20040310
  Transmission Date: 20050727
  Serious: No
  Sender: FDA-Public Use
  Company Number: US-BRISTOL-MYERS SQUIBB COMPANY-12529640

PATIENT
  Age: 69 Year
  Sex: Male
  Weight: 109 kg

DRUGS (15)
  1. GLUCOPHAGE [Suspect]
     Indication: DIABETES MELLITUS NON-INSULIN-DEPENDENT
     Route: 048
     Dates: start: 20040101, end: 20040223
  2. ANDRODERM [Suspect]
     Indication: BLOOD TESTOSTERONE DECREASED
     Route: 062
     Dates: start: 20040209, end: 20040226
  3. ZOCOR [Suspect]
     Indication: BLOOD CHOLESTEROL INCREASED
     Route: 048
     Dates: start: 20040101
  4. TERAZOSIN [Concomitant]
  5. ZOLOFT [Concomitant]
     Dates: start: 20020101
  6. PAIN MEDICATIONS [Concomitant]
  7. NITROGLYCERIN [Concomitant]
  8. GINSENG [Concomitant]
  9. GINKGO BILOBA [Concomitant]
  10. RETINOL [Concomitant]
  11. VITAMIN B COMPLEX CAP [Concomitant]
  12. VITAMIN E [Concomitant]
  13. VITAMIN C [Concomitant]
  14. GLUCOSAMINE [Concomitant]
  15. COENZYME Q10 [Concomitant]

REACTIONS (7)
  - ANXIETY [None]
  - DIZZINESS [None]
  - FATIGUE [None]
  - MUSCULAR WEAKNESS [None]
  - MYALGIA [None]
  - NAUSEA [None]
  - NERVOUSNESS [None]
